FAERS Safety Report 11150819 (Version 2)
Quarter: 2019Q3

REPORT INFORMATION
  Report Type: Spontaneous
  Country: DE (occurrence: DE)
  Receive Date: 20150601
  Receipt Date: 20190705
  Transmission Date: 20191004
  Serious: Yes (Congenital Anomaly, Other)
  Sender: FDA-Public Use
  Company Number: DE-AUROBINDO-AUR-APL-2015-04701

PATIENT

DRUGS (5)
  1. ASPIRIN. [Concomitant]
     Active Substance: ASPIRIN
     Indication: FACTOR V DEFICIENCY
     Dosage: 100 MILLIGRAM, ONCE A DAY
     Route: 064
     Dates: start: 20131123, end: 20140818
  2. FERRIC SULFATE [Concomitant]
     Active Substance: FERRIC SULFATE
     Indication: IRON DEFICIENCY ANAEMIA
     Dosage: UNK
     Route: 064
  3. LEVETIRACETAM 500MG [Suspect]
     Active Substance: LEVETIRACETAM
     Indication: EPILEPSY
     Dosage: 1000 MILLIGRAM, ONCE A DAY (500 MG, 2X/DAY (BID))
     Route: 064
     Dates: start: 20131123, end: 20140818
  4. TOPIRAMATE 25MG [Suspect]
     Active Substance: TOPIRAMATE
     Indication: EPILEPSY
     Dosage: 25 MILLIGRAM, ONCE A DAY
     Route: 064
     Dates: start: 20131123, end: 20140818
  5. JODID [Concomitant]
     Active Substance: IODINE
     Indication: IRON DEFICIENCY
     Dosage: UNK
     Route: 064

REACTIONS (2)
  - Foetal exposure during pregnancy [Unknown]
  - Dysmorphism [Not Recovered/Not Resolved]

NARRATIVE: CASE EVENT DATE: 20131207
